FAERS Safety Report 23452456 (Version 1)
Quarter: 2024Q1

REPORT INFORMATION
  Report Type: Spontaneous
  Country: CA (occurrence: CA)
  Receive Date: 20240129
  Receipt Date: 20240129
  Transmission Date: 20240410
  Serious: Yes (Death)
  Sender: FDA-Public Use
  Company Number: CA-FreseniusKabi-FK202401206

PATIENT
  Age: 24 Year
  Sex: Female

DRUGS (3)
  1. MORPHINE [Suspect]
     Active Substance: MORPHINE
     Indication: Product used for unknown indication
     Dosage: DOSAGE FORM: NOT SPECIFIED
  2. GABAPENTIN [Suspect]
     Active Substance: GABAPENTIN
     Indication: Product used for unknown indication
     Dosage: NOT SPECIFIED
  3. ACETAMINOPHEN [Suspect]
     Active Substance: ACETAMINOPHEN
     Indication: Product used for unknown indication
     Dosage: NOT SPECIFIED
     Route: 048

REACTIONS (9)
  - Coagulopathy [Fatal]
  - Depressed level of consciousness [Fatal]
  - Encephalopathy [Fatal]
  - Haemorrhage [Fatal]
  - Hypoglycaemia [Fatal]
  - Liver injury [Fatal]
  - Metabolic acidosis [Fatal]
  - Oedema [Fatal]
  - Overdose [Fatal]
